FAERS Safety Report 21300430 (Version 1)
Quarter: 2022Q3

REPORT INFORMATION
  Report Type: Spontaneous
  Country: DE (occurrence: DE)
  Receive Date: 20220907
  Receipt Date: 20220907
  Transmission Date: 20221026
  Serious: Yes (Death, Other)
  Sender: FDA-Public Use
  Company Number: DE-ASTELLAS-2022US030423

PATIENT
  Sex: Male

DRUGS (6)
  1. PEMBROLIZUMAB [Suspect]
     Active Substance: PEMBROLIZUMAB
     Dosage: UNK, UNKNOWN FREQ.
     Route: 065
  2. CISPLATIN [Suspect]
     Active Substance: CISPLATIN
     Indication: Transitional cell carcinoma metastatic
     Dosage: UNK, UNKNOWN FREQ.
     Route: 065
  3. CARBOPLATIN\GEMCITABINE [Suspect]
     Active Substance: CARBOPLATIN\GEMCITABINE
     Indication: Transitional cell carcinoma metastatic
     Dosage: UNK, UNKNOWN FREQ.
     Route: 065
  4. PADCEV [Suspect]
     Active Substance: ENFORTUMAB VEDOTIN-EJFV
     Indication: Transitional cell carcinoma metastatic
     Dosage: UNK, UNKNOWN FREQ. (1ST CYCLE)
     Route: 065
     Dates: start: 20220613, end: 20220620
  5. PADCEV [Suspect]
     Active Substance: ENFORTUMAB VEDOTIN-EJFV
     Dosage: UNK, UNKNOWN FREQ. (2ND CYCLE)
     Route: 065
     Dates: start: 20220719, end: 20220802
  6. GEMCITABINE [Suspect]
     Active Substance: GEMCITABINE

REACTIONS (1)
  - Neutropenia [Fatal]

NARRATIVE: CASE EVENT DATE: 20220805
